FAERS Safety Report 4966605-4 (Version None)
Quarter: 2006Q2

REPORT INFORMATION
  Report Type: 
  Country: None (occurrence: None)
  Receive Date: 20060407
  Receipt Date: 20060227
  Transmission Date: 20061013
  Serious: Yes (Hospitalization, Other)
  Sender: FDA-Public Use
  Company Number: US-AVENTIS-200612007US

PATIENT
  Sex: Male
  Weight: 61 kg

DRUGS (13)
  1. LOVENOX [Suspect]
     Indication: THROMBOSIS PROPHYLAXIS
     Dates: start: 20060115, end: 20060207
  2. LOVENOX [Suspect]
     Dates: start: 20060214
  3. EPOGEN [Suspect]
     Dosage: DOSE: UNK
     Route: 051
     Dates: start: 20051101, end: 20060207
  4. VINCRISTINE [Suspect]
     Indication: ACUTE LYMPHOCYTIC LEUKAEMIA
     Dosage: DOSE: UNK
     Dates: start: 20051101
  5. ELSPAR [Concomitant]
     Indication: ACUTE LYMPHOCYTIC LEUKAEMIA
     Dosage: DOSE: UNK
     Dates: start: 20051101
  6. METHOTREXATE [Concomitant]
     Indication: ACUTE LYMPHOCYTIC LEUKAEMIA
     Dosage: DOSE: UNK
     Dates: start: 20051101
  7. MARINOL [Concomitant]
     Dosage: DOSE: UNK
  8. CELEXA [Concomitant]
     Dosage: DOSE: UNK
  9. SEPTRA [Concomitant]
     Dosage: DOSE: UNK
  10. IRON [Concomitant]
     Dosage: DOSE: UNK
  11. SENNA [Concomitant]
     Dosage: DOSE: UNK
  12. ZOFRAN [Concomitant]
     Dosage: DOSE: UNKNOWN
  13. KYTRIL [Concomitant]

REACTIONS (20)
  - ACTIVATED PARTIAL THROMBOPLASTIN TIME PROLONGED [None]
  - ALANINE AMINOTRANSFERASE INCREASED [None]
  - BLOOD BILIRUBIN INCREASED [None]
  - BLOOD CREATININE INCREASED [None]
  - BLOOD FIBRINOGEN DECREASED [None]
  - CHOKING SENSATION [None]
  - CONVULSION [None]
  - DYSKINESIA [None]
  - EYE ROLLING [None]
  - FALL [None]
  - INTERNATIONAL NORMALISED RATIO INCREASED [None]
  - MUSCULOSKELETAL STIFFNESS [None]
  - NEUTROPENIA [None]
  - NEUTROPHIL COUNT DECREASED [None]
  - PLATELET COUNT INCREASED [None]
  - PROTEIN TOTAL DECREASED [None]
  - PROTHROMBIN TIME PROLONGED [None]
  - RESPIRATORY DISTRESS [None]
  - TONGUE BITING [None]
  - VISUAL DISTURBANCE [None]
